FAERS Safety Report 5274027-4 (Version None)
Quarter: 2007Q1

REPORT INFORMATION
  Report Type: 
  Country: None (occurrence: None)
  Receive Date: 20070323
  Receipt Date: 20070319
  Transmission Date: 20070707
  Serious: Yes (Hospitalization)
  Sender: FDA-Public Use
  Company Number: US-ELI_LILLY_AND_COMPANY-US200703003897

PATIENT
  Age: 82 Year
  Sex: Male

DRUGS (2)
  1. HUMATROPE [Suspect]
     Dosage: UNK, UNK
     Dates: start: 20060101
  2. TOPROL-XL [Concomitant]
     Indication: BLOOD PRESSURE

REACTIONS (4)
  - ASTHENIA [None]
  - CEREBROVASCULAR ACCIDENT [None]
  - FATIGUE [None]
  - HEMIPARESIS [None]
